FAERS Safety Report 23510903 (Version 1)
Quarter: 2024Q1

REPORT INFORMATION
  Report Type: Report from Study
  Country: CA (occurrence: CA)
  Receive Date: 20240212
  Receipt Date: 20240212
  Transmission Date: 20240410
  Serious: Yes (Hospitalization, Other)
  Sender: FDA-Public Use
  Company Number: CA-TAKEDA-2024TUS010347

PATIENT
  Sex: Female

DRUGS (2)
  1. VEDOLIZUMAB [Suspect]
     Active Substance: VEDOLIZUMAB
     Indication: Colitis ulcerative
     Dosage: 300 MILLIGRAM
     Route: 042
     Dates: start: 20230510
  2. PREDNISONE [Concomitant]
     Active Substance: PREDNISONE
     Dosage: UNK
     Dates: start: 202212

REACTIONS (8)
  - Peritonsillar abscess [Recovered/Resolved]
  - Dehydration [Unknown]
  - Vascular access site bruising [Unknown]
  - Infusion site extravasation [Unknown]
  - Poor venous access [Unknown]
  - Frequent bowel movements [Recovered/Resolved]
  - Defaecation urgency [Recovered/Resolved]
  - Dyspepsia [Recovered/Resolved]
